FAERS Safety Report 24129550 (Version 2)
Quarter: 2024Q3

REPORT INFORMATION
  Report Type: Report from Study
  Country: US (occurrence: US)
  Receive Date: 20240724
  Receipt Date: 20240726
  Transmission Date: 20241016
  Serious: No
  Sender: MERCK
  Company Number: US-009507513-2407USA005356

PATIENT
  Age: 47 Year
  Sex: Female

DRUGS (4)
  1. SOTATERCEPT [Suspect]
     Active Substance: SOTATERCEPT
     Indication: Pulmonary arterial hypertension
     Dosage: 0.3ML SUBCUTANEOUS FOR 1 DOSE THEN INCREASE TO 0.7ML GIVEN EVERY 3 WEEKS
     Route: 058
     Dates: start: 202407
  2. OPSUMIT [Concomitant]
     Active Substance: MACITENTAN
  3. ALYQ [Concomitant]
     Active Substance: TADALAFIL
  4. TYVASO DPI [Concomitant]
     Active Substance: TREPROSTINIL

REACTIONS (2)
  - Cough [Unknown]
  - Dyspnoea exertional [Unknown]

NARRATIVE: CASE EVENT DATE: 20240701
